FAERS Safety Report 17438439 (Version 4)
Quarter: 2020Q1

REPORT INFORMATION
  Report Type: Spontaneous
  Country: US (occurrence: US)
  Receive Date: 20200220
  Receipt Date: 20200319
  Transmission Date: 20200409
  Serious: Yes (Other)
  Sender: FDA-Public Use
  Company Number: US-ROCHE-2548571

PATIENT
  Sex: Male
  Weight: 91.25 kg

DRUGS (1)
  1. KLONOPIN [Suspect]
     Active Substance: CLONAZEPAM
     Indication: GENERALISED ANXIETY DISORDER
     Route: 048
     Dates: start: 2002, end: 201907

REACTIONS (8)
  - Paraesthesia [Unknown]
  - Glutamate dehydrogenase increased [Unknown]
  - Glutamate dehydrogenase level abnormal [Unknown]
  - Tremor [Not Recovered/Not Resolved]
  - Brain injury [Unknown]
  - Impaired work ability [Unknown]
  - Neurotransmitter level altered [Unknown]
  - Phobia [Unknown]
